FAERS Safety Report 6711349-1 (Version None)
Quarter: 2010Q2

REPORT INFORMATION
  Report Type: 
  Country: None (occurrence: None)
  Receive Date: 20100505
  Receipt Date: 20100423
  Transmission Date: 20101027
  Serious: Yes (Hospitalization)
  Sender: FDA-Public Use
  Company Number: NL-ELI_LILLY_AND_COMPANY-NL201004002682

PATIENT
  Sex: Female
  Weight: 56.3 kg

DRUGS (12)
  1. PEMETREXED [Suspect]
     Indication: NON-SMALL CELL LUNG CANCER
     Dosage: 500 MG/M2, DAY 1 EVERY 21 DAYS
     Route: 042
     Dates: start: 20100408
  2. CISPLATIN [Suspect]
     Indication: NON-SMALL CELL LUNG CANCER
     Dosage: 75 MG/M2, DAY 1 EVERY 21 DAYS
     Route: 042
     Dates: start: 20100408
  3. FOLIC ACID [Concomitant]
     Indication: PROPHYLAXIS
     Dates: start: 20100401
  4. VITAMIN B-12 [Concomitant]
     Indication: PROPHYLAXIS
     Dates: start: 20100401
  5. DEXAMETHASONE [Concomitant]
     Indication: PROPHYLAXIS
     Dates: start: 20100407
  6. CISORDINOL /00075802/ [Concomitant]
     Indication: ANXIETY
     Dates: start: 20100319, end: 20100407
  7. PARACETAMOL [Concomitant]
     Indication: PAIN PROPHYLAXIS
     Dates: start: 20100317
  8. FRAXIPARIN [Concomitant]
     Indication: THROMBOSIS PROPHYLAXIS
     Dates: start: 20100323, end: 20100407
  9. PREDNISONE [Concomitant]
     Indication: DYSPNOEA
     Dates: start: 20100323, end: 20100408
  10. METOCLOPRAMIDE HYDROCHLORIDE [Concomitant]
     Indication: PROPHYLAXIS OF NAUSEA AND VOMITING
     Dates: start: 20100411
  11. TEMAZEPAM [Concomitant]
     Indication: PROPHYLAXIS
     Dates: start: 20100413
  12. CITALOPRAM HYDROBROMIDE [Concomitant]
     Indication: PROPHYLAXIS
     Dates: start: 20100415

REACTIONS (2)
  - C-REACTIVE PROTEIN INCREASED [None]
  - DIZZINESS [None]
